FAERS Safety Report 6376378-9 (Version None)
Quarter: 2009Q3

REPORT INFORMATION
  Report Type: 
  Country: None (occurrence: None)
  Receive Date: 20090925
  Receipt Date: 20090915
  Transmission Date: 20100115
  Serious: Yes (Other)
  Sender: FDA-Public Use
  Company Number: US-WYE-H11012409

PATIENT
  Sex: Female
  Weight: 63.11 kg

DRUGS (4)
  1. PRISTIQ [Suspect]
     Indication: DEPRESSION
     Route: 048
     Dates: start: 20090724, end: 20090902
  2. LOVAZA [Concomitant]
     Indication: HYPERLIPIDAEMIA
     Route: 048
  3. L-METHYLFOLATE [Concomitant]
     Route: 048
  4. LEVOXYL [Concomitant]
     Indication: HYPOTHYROIDISM
     Dosage: 25 MCG QD
     Route: 048

REACTIONS (1)
  - SUICIDAL IDEATION [None]
